FAERS Safety Report 24689336 (Version 2)
Quarter: 2024Q4

REPORT INFORMATION
  Report Type: Spontaneous
  Country: FR (occurrence: FR)
  Receive Date: 20241203
  Receipt Date: 20241231
  Transmission Date: 20250115
  Serious: Yes (Other)
  Sender: BIOGEN
  Company Number: FR-BIOGEN-2024BI01292241

PATIENT
  Age: 28 Year
  Sex: Male
  Weight: 71 kg

DRUGS (1)
  1. SKYCLARYS [Suspect]
     Active Substance: OMAVELOXOLONE
     Indication: Friedreich^s ataxia
     Dosage: 3 DOSAGE FORMS PER 1 DAY
     Route: 050
     Dates: start: 20240822, end: 20240926

REACTIONS (3)
  - Hepatic cytolysis [Recovered/Resolved]
  - Low density lipoprotein increased [Recovered/Resolved]
  - High density lipoprotein decreased [Recovered/Resolved]

NARRATIVE: CASE EVENT DATE: 20240926
